FAERS Safety Report 6528612-X (Version None)
Quarter: 2010Q1

REPORT INFORMATION
  Report Type: 
  Country: None (occurrence: None)
  Receive Date: 20100106
  Receipt Date: 20091230
  Transmission Date: 20100710
  Serious: Yes (Life-Threatening, Hospitalization)
  Sender: FDA-Public Use
  Company Number: FR-BRISTOL-MYERS SQUIBB COMPANY-14921290

PATIENT
  Age: 55 Year
  Sex: Female

DRUGS (5)
  1. GLUCOPHAGE [Suspect]
     Route: 048
     Dates: end: 20090414
  2. COVERSYL [Suspect]
     Dosage: STRENGTH:2MG;FORMULATION:TABLET
     Route: 048
     Dates: end: 20090414
  3. LASILIX [Concomitant]
  4. ALDACTONE [Concomitant]
  5. CARDENSIEL [Concomitant]

REACTIONS (5)
  - GASTROINTESTINAL HAEMORRHAGE [None]
  - HEPATIC CIRRHOSIS [None]
  - LACTIC ACIDOSIS [None]
  - RENAL FAILURE [None]
  - SHOCK HAEMORRHAGIC [None]
